FAERS Safety Report 20058636 (Version 2)
Quarter: 2021Q4

REPORT INFORMATION
  Report Type: Spontaneous
  Country: NL (occurrence: NL)
  Receive Date: 20211111
  Receipt Date: 20211122
  Transmission Date: 20220303
  Serious: Yes (Other)
  Sender: FDA-Public Use
  Company Number: NL-TEVA-2021-NL-1974890

PATIENT
  Age: 4 Decade
  Sex: Male

DRUGS (2)
  1. CISPLATIN [Suspect]
     Active Substance: CISPLATIN
     Indication: Testis cancer
     Route: 065
  2. ETOPOSIDE [Suspect]
     Active Substance: ETOPOSIDE
     Indication: Testis cancer
     Route: 065

REACTIONS (5)
  - Weight increased [Recovered/Resolved]
  - Metabolic syndrome [Recovered/Resolved]
  - Obesity [Recovered/Resolved]
  - Blood testosterone decreased [Recovered/Resolved]
  - Hypogonadism male [Recovered/Resolved]
